FAERS Safety Report 7202244-2 (Version None)
Quarter: 2010Q4

REPORT INFORMATION
  Report Type: 
  Country: None (occurrence: None)
  Receive Date: 20101229
  Receipt Date: 20101221
  Transmission Date: 20110411
  Serious: Yes (Death, Other)
  Sender: FDA-Public Use
  Company Number: JP-GENZYME-FLUD-1000559

PATIENT
  Sex: Male
  Weight: 51 kg

DRUGS (17)
  1. FLUDARA [Suspect]
     Indication: PREMEDICATION
     Dosage: UNK
     Route: 065
     Dates: start: 20091127, end: 20091201
  2. THYMOGLOBULIN [Suspect]
     Indication: PREMEDICATION
     Dosage: 125.0 MG, QD
     Route: 042
     Dates: start: 20091128, end: 20091130
  3. NOREPINEPHRINE BITARTRATE [Concomitant]
     Indication: PRODUCT USED FOR UNKNOWN INDICATION
     Dosage: UNK
     Route: 065
     Dates: start: 20091129, end: 20091207
  4. FILGRASTIM [Concomitant]
     Indication: NON-HODGKIN'S LYMPHOMA
     Dosage: UNK
     Route: 065
     Dates: start: 20091204, end: 20100131
  5. HYDROCORTISONE 21-(SODIUM SUCCINATE) [Concomitant]
     Indication: PRODUCT USED FOR UNKNOWN INDICATION
     Dosage: UNK
     Route: 065
     Dates: start: 20091203, end: 20091203
  6. RITUXIMAB [Concomitant]
     Indication: NON-HODGKIN'S LYMPHOMA
     Dosage: UNK
     Route: 065
     Dates: start: 20091120, end: 20091127
  7. METHYLPREDNISOLONE SODIUM SUCCINATE [Concomitant]
     Indication: PREMEDICATION
     Dosage: UNK
     Route: 065
     Dates: start: 20091128, end: 20091130
  8. CYCLOPHOSPHAMIDE [Concomitant]
     Indication: PREMEDICATION
     Dosage: UNK
     Route: 065
     Dates: start: 20091130, end: 20091201
  9. MESNA [Concomitant]
     Indication: PRODUCT USED FOR UNKNOWN INDICATION
     Dosage: UNK
     Route: 065
     Dates: start: 20091130, end: 20091201
  10. GRANISETRON HYDROCHLORIDE [Concomitant]
     Indication: PRODUCT USED FOR UNKNOWN INDICATION
     Dosage: UNK
     Route: 065
     Dates: start: 20091130, end: 20091201
  11. METHOTREXATE [Concomitant]
     Indication: PROPHYLAXIS AGAINST GRAFT VERSUS HOST DISEASE
     Dosage: UNK
     Route: 065
     Dates: start: 20091204, end: 20091209
  12. CALCIUM FOLINATE [Concomitant]
     Indication: PROPHYLAXIS AGAINST GRAFT VERSUS HOST DISEASE
     Dosage: UNK
     Route: 065
     Dates: start: 20091204, end: 20091209
  13. CYCLOSPORINE [Concomitant]
     Indication: PROPHYLAXIS AGAINST GRAFT VERSUS HOST DISEASE
     Dosage: UNK
     Route: 065
     Dates: start: 20091202, end: 20100107
  14. POLYETHYLENE GLYCOL TREATED IMMUNOGLOBULIN HUMAN NORMAL [Concomitant]
     Indication: INFECTION PROPHYLAXIS
     Dosage: UNK
     Route: 065
     Dates: start: 20091204, end: 20100129
  15. ACYCLOVIR [Concomitant]
     Indication: INFECTION PROPHYLAXIS
     Dosage: UNK
     Route: 065
     Dates: start: 20091124, end: 20100107
  16. VALGANCICLOVIR HYDROCHLORIDE (VALCYTE) [Concomitant]
     Indication: PRODUCT USED FOR UNKNOWN INDICATION
     Dosage: UNK
     Route: 065
     Dates: start: 20091218, end: 20100121
  17. SULFAMETHOPRIM [Concomitant]
     Indication: INFECTION PROPHYLAXIS
     Dosage: UNK
     Route: 065
     Dates: start: 20091229, end: 20100124

REACTIONS (10)
  - ADENOVIRUS INFECTION [None]
  - BACTERIAL INFECTION [None]
  - CLOSTRIDIUM DIFFICILE COLITIS [None]
  - CYTOMEGALOVIRUS INFECTION [None]
  - DISEASE PROGRESSION [None]
  - ENTEROBACTER INFECTION [None]
  - ESCHERICHIA BACTERAEMIA [None]
  - GENITAL CANDIDIASIS [None]
  - PYREXIA [None]
  - STAPHYLOCOCCAL BACTERAEMIA [None]
